FAERS Safety Report 6286122-1 (Version None)
Quarter: 2009Q3

REPORT INFORMATION
  Report Type: 
  Country: None (occurrence: None)
  Receive Date: 20090728
  Receipt Date: 20090715
  Transmission Date: 20100115
  Serious: Yes (Hospitalization)
  Sender: FDA-Public Use
  Company Number: US-ROCHE-640623

PATIENT
  Sex: Female

DRUGS (2)
  1. ACCUTANE [Suspect]
     Indication: ACNE
     Route: 048
     Dates: start: 20070101, end: 20090401
  2. SOTRET [Suspect]
     Indication: ACNE
     Route: 065
     Dates: start: 20090401

REACTIONS (1)
  - NON-HODGKIN'S LYMPHOMA [None]
